FAERS Safety Report 11864846 (Version 1)
Quarter: 2015Q4

REPORT INFORMATION
  Report Type: Spontaneous
  Country: US (occurrence: US)
  Receive Date: 20151223
  Receipt Date: 20151223
  Transmission Date: 20160305
  Serious: Yes (Hospitalization)
  Sender: FDA-Public Use
  Company Number: US-IGSA-GTI003764

PATIENT
  Age: 59 Year
  Sex: Female
  Weight: 113 kg

DRUGS (29)
  1. CARAFATE [Concomitant]
     Active Substance: SUCRALFATE
  2. AMICAR [Concomitant]
     Active Substance: AMINOCAPROIC ACID
  3. ABILIFY [Concomitant]
     Active Substance: ARIPIPRAZOLE
  4. SYNTHROID [Concomitant]
     Active Substance: LEVOTHYROXINE SODIUM
  5. LASIX [Concomitant]
     Active Substance: FUROSEMIDE
  6. FLONAZ [Concomitant]
  7. GAMUNEX-C [Suspect]
     Active Substance: HUMAN IMMUNOGLOBULIN G
     Indication: CHRONIC INFLAMMATORY DEMYELINATING POLYRADICULONEUROPATHY
     Route: 042
     Dates: start: 201406
  8. AZATHIOPRINE. [Concomitant]
     Active Substance: AZATHIOPRINE
  9. ZANAFLEX [Concomitant]
     Active Substance: TIZANIDINE HYDROCHLORIDE
  10. ALDACTONE [Concomitant]
     Active Substance: SPIRONOLACTONE
  11. NIACIN. [Concomitant]
     Active Substance: NIACIN
  12. ESTRATEST [Concomitant]
     Active Substance: ESTROGENS, ESTERIFIED\METHYLTESTOSTERONE
  13. NEXIUM [Concomitant]
     Active Substance: ESOMEPRAZOLE MAGNESIUM
  14. CELLCEPT [Concomitant]
     Active Substance: MYCOPHENOLATE MOFETIL\MYCOPHENOLATE MOFETIL HYDROCHLORIDE
  15. MULTIPLE VITAMINS [Concomitant]
     Active Substance: VITAMINS
  16. TEGRETOL [Concomitant]
     Active Substance: CARBAMAZEPINE
  17. PLAQUENIL [Concomitant]
     Active Substance: HYDROXYCHLOROQUINE SULFATE
  18. LUTEIN /01638501/ [Concomitant]
     Active Substance: LUTEIN
  19. IZOFRAN /00955301/ [Concomitant]
  20. VISTARIL [Concomitant]
     Active Substance: HYDROXYZINE PAMOATE
  21. GAMUNEX-C [Suspect]
     Active Substance: HUMAN IMMUNOGLOBULIN G
     Indication: CHRONIC INFLAMMATORY DEMYELINATING POLYRADICULONEUROPATHY
     Route: 042
     Dates: start: 20151213
  22. OXYCONTIN [Concomitant]
     Active Substance: OXYCODONE HYDROCHLORIDE
  23. CYMBALTA [Concomitant]
     Active Substance: DULOXETINE HYDROCHLORIDE
  24. INHALATION [Concomitant]
  25. NOVOLOG [Concomitant]
     Active Substance: INSULIN ASPART
  26. SUBOXONE [Concomitant]
     Active Substance: BUPRENORPHINE HYDROCHLORIDE\NALOXONE HYDROCHLORIDE
  27. PENNSAID [Concomitant]
     Active Substance: DICLOFENAC SODIUM
  28. ZOCOR [Concomitant]
     Active Substance: SIMVASTATIN
  29. MINOCYCLINE HCL [Concomitant]
     Active Substance: MINOCYCLINE HYDROCHLORIDE

REACTIONS (1)
  - Pancreatitis [Unknown]

NARRATIVE: CASE EVENT DATE: 20151213
